FAERS Safety Report 21940740 (Version 1)
Quarter: 2023Q1

REPORT INFORMATION
  Report Type: Report from Study
  Country: US (occurrence: US)
  Receive Date: 20230201
  Receipt Date: 20230201
  Transmission Date: 20230417
  Serious: No
  Sender: FDA-Public Use
  Company Number: US-EXELIXIS-CABO-22052484

PATIENT
  Age: 64 Year
  Sex: Female

DRUGS (2)
  1. CABOMETYX [Suspect]
     Active Substance: CABOZANTINIB S-MALATE
     Indication: Product used for unknown indication
     Dosage: 40 MG, QD
     Route: 048
     Dates: start: 20220527
  2. CABOMETYX [Suspect]
     Active Substance: CABOZANTINIB S-MALATE
     Dosage: 20 MG, QD
     Route: 048

REACTIONS (16)
  - Toothache [Unknown]
  - Swelling face [Unknown]
  - Frequent bowel movements [Unknown]
  - Skin exfoliation [Unknown]
  - Skin fissures [Unknown]
  - Renal impairment [Recovering/Resolving]
  - Abdominal distension [Unknown]
  - Oedema peripheral [Unknown]
  - Nausea [Unknown]
  - Fatigue [Unknown]
  - Stomatitis [Unknown]
  - Diarrhoea [Unknown]
  - Vomiting [Unknown]
  - Blood pressure increased [Recovering/Resolving]
  - Conjunctival haemorrhage [Unknown]
  - Product dose omission issue [Unknown]

NARRATIVE: CASE EVENT DATE: 20220501
